FAERS Safety Report 16882825 (Version 3)
Quarter: 2019Q4

REPORT INFORMATION
  Report Type: Spontaneous
  Country: DE (occurrence: DE)
  Receive Date: 20191003
  Receipt Date: 20191024
  Transmission Date: 20200122
  Serious: Yes (Other)
  Sender: FDA-Public Use
  Company Number: DE-AUROBINDO-AUR-APL-2019-063574

PATIENT
  Age: 54 Year
  Sex: Female

DRUGS (1)
  1. PRAMIPEXOLE. [Suspect]
     Active Substance: PRAMIPEXOLE
     Indication: RESTLESS LEGS SYNDROME
     Dosage: IN A STEADILY INCREASING DOSE
     Route: 065

REACTIONS (7)
  - Impulse-control disorder [Unknown]
  - Gambling disorder [Unknown]
  - Thinking abnormal [Unknown]
  - Withdrawal syndrome [Unknown]
  - Off label use [Unknown]
  - Crime [Unknown]
  - Abnormal behaviour [Unknown]
